FAERS Safety Report 10756261 (Version 2)
Quarter: 2015Q1

REPORT INFORMATION
  Report Type: Other
  Country: IT (occurrence: IT)
  Receive Date: 20150202
  Receipt Date: 20150211
  Transmission Date: 20150721
  Serious: Yes (Hospitalization)
  Sender: FDA-Public Use
  Company Number: IT-MYLANLABS-2015M1002701

PATIENT

DRUGS (6)
  1. ESCITALOPRAM ALTER [Concomitant]
     Indication: PRODUCT USED FOR UNKNOWN INDICATION
     Dosage: UNK
  2. NUROFEN                            /00109201/ [Concomitant]
     Active Substance: IBUPROFEN
     Indication: PRODUCT USED FOR UNKNOWN INDICATION
     Dosage: UNK
  3. ENANTYUM [Concomitant]
     Active Substance: DEXKETOPROFEN TROMETAMOL
     Indication: PRODUCT USED FOR UNKNOWN INDICATION
  4. PAROXETINE HYDROCHLORIDE. [Suspect]
     Active Substance: PAROXETINE HYDROCHLORIDE
     Indication: PRODUCT USED FOR UNKNOWN INDICATION
     Dosage: 280 MG, TOTAL
     Route: 048
     Dates: start: 20130701, end: 20130701
  5. XANAX [Suspect]
     Active Substance: ALPRAZOLAM
     Indication: PRODUCT USED FOR UNKNOWN INDICATION
     Dosage: 20 ML, TOTAL
     Route: 048
     Dates: start: 20130701, end: 20130701
  6. LEXOTAN [Suspect]
     Active Substance: BROMAZEPAM
     Indication: PRODUCT USED FOR UNKNOWN INDICATION
     Dosage: 15 ML, TOTAL
     Route: 048
     Dates: start: 20130701, end: 20130701

REACTIONS (3)
  - Toxicity to various agents [Recovered/Resolved]
  - Bradyphrenia [Recovered/Resolved]
  - Drug abuse [Recovered/Resolved]

NARRATIVE: CASE EVENT DATE: 20130701
